FAERS Safety Report 6297885-3 (Version None)
Quarter: 2009Q3

REPORT INFORMATION
  Report Type: 
  Country: None (occurrence: None)
  Receive Date: 20090804
  Receipt Date: 20090804
  Transmission Date: 20100115
  Serious: Yes (Disabling)
  Sender: FDA-Public Use
  Company Number: None

PATIENT
  Age: 80 Year
  Sex: Male
  Weight: 72.5755 kg

DRUGS (3)
  1. LEVAQUIN [Suspect]
     Indication: EAR INFECTION
     Dosage: 1/DAY, 10DAYS
     Dates: start: 20090705, end: 20090705
  2. LEVAQUIN [Suspect]
     Indication: EYE INFECTION
     Dosage: 1/DAY, 10DAYS
     Dates: start: 20090705, end: 20090705
  3. LEVAQUIN [Suspect]
     Indication: PNEUMONIA
     Dosage: 1/DAY, 10DAYS
     Dates: start: 20090705, end: 20090705

REACTIONS (2)
  - GAIT DISTURBANCE [None]
  - TENDON PAIN [None]
